FAERS Safety Report 22370715 (Version 1)
Quarter: 2023Q2

REPORT INFORMATION
  Report Type: Spontaneous
  Country: US (occurrence: US)
  Receive Date: 20230526
  Receipt Date: 20230526
  Transmission Date: 20230722
  Serious: Yes (Other)
  Sender: FDA-Public Use
  Company Number: US-PFIZER INC-202300200198

PATIENT
  Age: 60 Year
  Sex: Female

DRUGS (4)
  1. VERAPAMIL HCL [Suspect]
     Active Substance: VERAPAMIL HYDROCHLORIDE
     Indication: Hypertrophy
     Dosage: 120 MG, DAILY
  2. METOPROLOL SUCCINATE [Suspect]
     Active Substance: METOPROLOL SUCCINATE
     Indication: Hypertrophy
     Dosage: 50 MG TWICE DAILY
  3. DISOPYRAMIDE PHOSPHATE [Concomitant]
     Active Substance: DISOPYRAMIDE PHOSPHATE
     Indication: Hypertrophy
     Dosage: 100 MG, 2X/DAY
  4. DISOPYRAMIDE PHOSPHATE [Concomitant]
     Active Substance: DISOPYRAMIDE PHOSPHATE
     Dosage: 600 MG, THREE DIVIDED DOSES

REACTIONS (1)
  - Sinus bradycardia [Unknown]
